APPROVED DRUG PRODUCT: VORICONAZOLE
Active Ingredient: VORICONAZOLE
Strength: 200MG/5ML
Dosage Form/Route: FOR SUSPENSION;ORAL
Application: A205034 | Product #001 | TE Code: AB
Applicant: AMNEAL PHARMACEUTICALS
Approved: Apr 13, 2016 | RLD: No | RS: No | Type: RX